FAERS Safety Report 10089369 (Version 1)
Quarter: 2014Q2

REPORT INFORMATION
  Report Type: Spontaneous
  Country: US (occurrence: None)
  Receive Date: 20140418
  Receipt Date: 20140418
  Transmission Date: 20141212
  Serious: No
  Sender: FDA-Public Use
  Company Number: None

PATIENT
  Age: 50 Year
  Sex: Female

DRUGS (2)
  1. MEKINIST [Suspect]
     Indication: MALIGNANT MELANOMA
     Route: 048
     Dates: start: 20140314
  2. TAFINLAR [Suspect]
     Route: 048

REACTIONS (5)
  - Skin exfoliation [None]
  - Peripheral swelling [None]
  - Diarrhoea [None]
  - Nausea [None]
  - Decreased appetite [None]
